FAERS Safety Report 6836468-0 (Version None)
Quarter: 2010Q3

REPORT INFORMATION
  Report Type: 
  Country: None (occurrence: None)
  Receive Date: 20100713
  Receipt Date: 20100706
  Transmission Date: 20110219
  Serious: Yes (Other)
  Sender: FDA-Public Use
  Company Number: US-BAYER-201027200NA

PATIENT
  Age: 26 Year
  Sex: Female

DRUGS (1)
  1. YASMIN [Suspect]
     Indication: ORAL CONTRACEPTION
     Route: 048

REACTIONS (4)
  - DIZZINESS [None]
  - PULMONARY THROMBOSIS [None]
  - SYNCOPE [None]
  - THROMBOSIS [None]
